FAERS Safety Report 9475250 (Version 1)
Quarter: 2013Q3

REPORT INFORMATION
  Report Type: Spontaneous
  Country: US (occurrence: US)
  Receive Date: 20130825
  Receipt Date: 20130825
  Transmission Date: 20140515
  Serious: Yes (Other)
  Sender: FDA-Public Use
  Company Number: US-PFIZER INC-2013242849

PATIENT
  Age: 54 Year
  Sex: Female

DRUGS (3)
  1. XELJANZ [Suspect]
     Indication: RHEUMATOID ARTHRITIS
     Dosage: 5 MG, 2X/DAY
     Route: 048
  2. VITAMIN D [Concomitant]
     Dosage: 400 IU, UNK
  3. MULTIVITAMINS W/MINERALS [Concomitant]
     Dosage: UNK

REACTIONS (1)
  - Bone disorder [Unknown]
